FAERS Safety Report 7194527-X (Version None)
Quarter: 2010Q4

REPORT INFORMATION
  Report Type: 
  Country: None (occurrence: None)
  Receive Date: 20101223
  Receipt Date: 20101214
  Transmission Date: 20110411
  Serious: Yes (Hospitalization)
  Sender: FDA-Public Use
  Company Number: ES-WATSON-2010-16242

PATIENT
  Age: 40 Year
  Sex: Female

DRUGS (3)
  1. CABERGOLINE [Suspect]
     Indication: PROLACTINOMA
     Dosage: 0.5 MG, 1/WEEK
  2. CABERGOLINE [Suspect]
     Dosage: 0.25 MG, 1/WEEK
  3. CABERGOLINE [Suspect]
     Dosage: 0.75 MG, 1/WEEK

REACTIONS (3)
  - CONDITION AGGRAVATED [None]
  - DRUG RESISTANCE [None]
  - PITUITARY HAEMORRHAGE [None]
